FAERS Safety Report 10056998 (Version 2)
Quarter: 2014Q2

REPORT INFORMATION
  Report Type: Spontaneous
  Country: AU (occurrence: AU)
  Receive Date: 20140403
  Receipt Date: 20140417
  Transmission Date: 20141212
  Serious: Yes (Death, Other)
  Sender: FDA-Public Use
  Company Number: AU-TAKEDA-2014TJP004486

PATIENT
  Age: 82 Year
  Sex: Male

DRUGS (1)
  1. NESINA [Suspect]
     Indication: DIABETES MELLITUS MANAGEMENT
     Dosage: 12.5 MG, QD
     Route: 048

REACTIONS (1)
  - Cerebrovascular accident [Fatal]
